FAERS Safety Report 11203082 (Version 1)
Quarter: 2015Q2

REPORT INFORMATION
  Report Type: Spontaneous
  Country: US (occurrence: None)
  Receive Date: 20150617
  Receipt Date: 20150617
  Transmission Date: 20150821
  Serious: Yes (Other)
  Sender: FDA-Public Use
  Company Number: None

PATIENT
  Age: 64 Year
  Sex: Female

DRUGS (17)
  1. POTASSIUM [Concomitant]
     Active Substance: POTASSIUM
  2. OMEGA-3 FATTY ACIDS [Concomitant]
     Active Substance: OMEGA-3 FATTY ACIDS
  3. VD [Concomitant]
  4. ALPHA LIPOIC ACID [Concomitant]
     Active Substance: .ALPHA.-LIPOIC ACID
  5. CALCIUM [Concomitant]
     Active Substance: CALCIUM
  6. METHYCLOTHIAZIDE. [Concomitant]
     Active Substance: METHYCLOTHIAZIDE
  7. ASPIRIN. [Concomitant]
     Active Substance: ASPIRIN
  8. AZITHROMYCIN [Suspect]
     Active Substance: AZITHROMYCIN ANHYDROUS
     Indication: INFECTION PROPHYLAXIS
     Dosage: 250MG?6 TABLETS (PILLS)?2-DAY 1?1- DAY 2?1- DAY 3?1- DAY 4?1 - DAY 5
     Route: 048
     Dates: start: 20150428, end: 20150502
  9. SPIRIVA [Concomitant]
     Active Substance: TIOTROPIUM BROMIDE MONOHYDRATE
  10. BIOIN [Concomitant]
  11. MILK THISTLE [Concomitant]
     Active Substance: MILK THISTLE
  12. GLUCOSAMIN [Concomitant]
  13. MULTI VITAMIN [Concomitant]
     Active Substance: VITAMINS
  14. VC [Concomitant]
  15. PROAIR HFA [Concomitant]
     Active Substance: ALBUTEROL SULFATE
  16. MULTI VITAMIN [Concomitant]
     Active Substance: VITAMINS
  17. SYMBICORT [Concomitant]
     Active Substance: BUDESONIDE\FORMOTEROL FUMARATE DIHYDRATE

REACTIONS (2)
  - Abdominal pain upper [None]
  - Diarrhoea [None]

NARRATIVE: CASE EVENT DATE: 20150428
